FAERS Safety Report 4659379-8 (Version None)
Quarter: 2005Q2

REPORT INFORMATION
  Report Type: 
  Country: None (occurrence: None)
  Receive Date: 20050510
  Receipt Date: 20050426
  Transmission Date: 20051028
  Serious: Yes (Hospitalization)
  Sender: FDA-Public Use
  Company Number: MK200503-0211-2

PATIENT
  Age: 50 Year
  Sex: Male

DRUGS (3)
  1. OPTIRAY 350 [Suspect]
     Indication: ARTERIOGRAM CORONARY
     Dosage: 90 ML, ONE TIME
     Dates: start: 20050310, end: 20050310
  2. LEVOFLOXACIN [Concomitant]
  3. DIAZEPAM [Concomitant]

REACTIONS (3)
  - POST PROCEDURAL COMPLICATION [None]
  - PYREXIA [None]
  - STEVENS-JOHNSON SYNDROME [None]
